FAERS Safety Report 19224574 (Version 1)
Quarter: 2021Q2

REPORT INFORMATION
  Report Type: Spontaneous
  Country: FR (occurrence: FR)
  Receive Date: 20210506
  Receipt Date: 20210506
  Transmission Date: 20210717
  Serious: Yes (Hospitalization)
  Sender: FDA-Public Use
  Company Number: FR-MICRO LABS LIMITED-ML2021-01296

PATIENT
  Age: 23 Month
  Sex: Male
  Weight: 12.9 kg

DRUGS (2)
  1. DIGOXIN. [Concomitant]
     Active Substance: DIGOXIN
     Dosage: 3 PILLS
  2. APIXABAN [Suspect]
     Active Substance: APIXABAN
     Dosage: 8 PILLS

REACTIONS (4)
  - Prothrombin time prolonged [Recovered/Resolved]
  - Accidental exposure to product [Unknown]
  - Activated partial thromboplastin time prolonged [Recovered/Resolved]
  - Overdose [Unknown]
